FAERS Safety Report 8811229 (Version 1)
Quarter: 2012Q4

REPORT INFORMATION
  Report Type: 
  Country: US (occurrence: US)
  Receive Date: 20120927
  Receipt Date: 20120927
  Transmission Date: 20130627
  Serious: No
  Sender: FDA-Public Use
  Company Number: US-PFIZER INC-2012231178

PATIENT
  Sex: Female

DRUGS (2)
  1. LYRICA [Suspect]
     Indication: POST HERPETIC NEURALGIA
     Dosage: 50 mg, 1x/day
     Route: 048
     Dates: start: 20120913
  2. LYRICA [Suspect]
     Dosage: 75 mg, 3x/day
     Route: 048

REACTIONS (3)
  - Drug ineffective [Unknown]
  - Weight increased [Unknown]
  - Pain [Unknown]
